FAERS Safety Report 5612405-1 (Version None)
Quarter: 2008Q1

REPORT INFORMATION
  Report Type: 
  Country: None (occurrence: None)
  Receive Date: 20080204
  Receipt Date: 20080122
  Transmission Date: 20080703
  Serious: Yes (Hospitalization)
  Sender: FDA-Public Use
  Company Number: GB-ROCHE-542968

PATIENT
  Age: 58 Year
  Sex: Female
  Weight: 95 kg

DRUGS (10)
  1. ORLISTAT [Suspect]
     Indication: OBESITY
     Route: 048
     Dates: start: 20070722
  2. CALCICHEW [Concomitant]
     Dosage: DRUG REPORTED: CALICHEW
     Route: 048
     Dates: start: 20040101
  3. LANSOPRAZOLE [Concomitant]
     Indication: GASTRIC ULCER
     Route: 048
     Dates: start: 19880101
  4. VITAMIN B [Concomitant]
     Route: 048
  5. SPIROLACTONE [Concomitant]
     Dosage: DRUG REPORTED: SPIROLACTALONE
     Route: 048
  6. METFORMIN HCL [Concomitant]
     Route: 048
  7. NORETHISTERONE [Concomitant]
     Dosage: DRUG REPORTED: NOREPHISTERONE
     Route: 048
     Dates: start: 20070512
  8. CITALOPRAM HYDROBROMIDE [Concomitant]
     Indication: DEPRESSION
     Route: 048
  9. FERROUS SULFATE TAB [Concomitant]
     Route: 048
  10. LANTUS [Concomitant]
     Route: 048

REACTIONS (1)
  - HYSTERECTOMY [None]
